FAERS Safety Report 20353304 (Version 2)
Quarter: 2022Q1

REPORT INFORMATION
  Report Type: Report from Study
  Country: ES (occurrence: ES)
  Receive Date: 20220119
  Receipt Date: 20220216
  Transmission Date: 20220424
  Serious: Yes (Other)
  Sender: FDA-Public Use
  Company Number: ES-JNJFOC-20210719939

PATIENT
  Age: 83 Year
  Sex: Male
  Weight: 75.4 kg

DRUGS (14)
  1. ERDAFITINIB [Suspect]
     Active Substance: ERDAFITINIB
     Indication: Transitional cell carcinoma
     Route: 048
     Dates: start: 20210325, end: 20210707
  2. ERDAFITINIB [Suspect]
     Active Substance: ERDAFITINIB
     Route: 048
     Dates: end: 20211206
  3. NYSTATIN [Concomitant]
     Active Substance: NYSTATIN
     Indication: Stomatitis
     Dates: start: 20210407
  4. BACTROBAN [Concomitant]
     Active Substance: MUPIROCIN\MUPIROCIN CALCIUM
     Indication: Nail infection
     Dates: start: 20210602
  5. COLLYRIUM [BORIC ACID;SODIUM BORATE] [Concomitant]
     Dates: start: 20210704, end: 20210707
  6. ATORVASTATIN CALCIUM [Concomitant]
     Active Substance: ATORVASTATIN CALCIUM
     Indication: Hypercholesterolaemia
     Dates: start: 2013
  7. BIMATOPROST\TIMOLOL [Concomitant]
     Active Substance: BIMATOPROST\TIMOLOL
     Indication: Hypertension
     Dates: start: 2019
  8. BIMATOPROST\TIMOLOL [Concomitant]
     Active Substance: BIMATOPROST\TIMOLOL
     Indication: Glaucoma
  9. CHOLECALCIFEROL [Concomitant]
     Active Substance: CHOLECALCIFEROL
     Indication: Vitamin D deficiency
     Dates: start: 2020
  10. CLEBOPRIDE [Concomitant]
     Active Substance: CLEBOPRIDE
     Indication: Flatulence
     Dates: start: 2013
  11. EPROSARTAN MESYLATE [Concomitant]
     Active Substance: EPROSARTAN MESYLATE
     Indication: Hypertension
     Dates: start: 2013
  12. OMEPRAZOLE [Concomitant]
     Active Substance: OMEPRAZOLE
     Indication: Gastrointestinal disorder therapy
     Dates: start: 2019
  13. TAMSULOSIN [Concomitant]
     Active Substance: TAMSULOSIN
     Indication: Benign prostatic hyperplasia
     Dates: start: 2018
  14. SEVELAMER [Concomitant]
     Active Substance: SEVELAMER
     Indication: Hyperphosphataemia
     Dates: start: 20210408, end: 20210506

REACTIONS (2)
  - Ulcerative keratitis [Recovered/Resolved]
  - Keratitis bacterial [Not Recovered/Not Resolved]

NARRATIVE: CASE EVENT DATE: 20210704
